FAERS Safety Report 8895420 (Version 1)
Quarter: 2012Q4

REPORT INFORMATION
  Report Type: 
  Country: US (occurrence: US)
  Receive Date: 20121108
  Receipt Date: 20121108
  Transmission Date: 20130627
  Serious: Yes (Hospitalization)
  Sender: FDA-Public Use
  Company Number: US-ALLERGAN-1215060US

PATIENT
  Age: 38 Year
  Sex: Female

DRUGS (9)
  1. RESTASIS [Suspect]
     Indication: DRY EYES
     Dosage: 1 Gtt OU, bid
     Route: 047
     Dates: start: 20111223, end: 20121002
  2. MULTIVITAMIN [Concomitant]
     Indication: SUPPLEMENTATION THERAPY
     Dosage: UNK
     Route: 048
  3. BIOTIN [Concomitant]
     Indication: SUPPLEMENTATION THERAPY
     Dosage: UNK
     Route: 048
  4. FLONASE [Concomitant]
     Indication: ALLERGY
     Dosage: 1 spray to each nostril, bid
     Route: 055
  5. VERAMYST [Concomitant]
     Indication: ALLERGY
     Dosage: nasal spray
     Route: 055
  6. RHINOCORT [Concomitant]
     Indication: ALLERGY
  7. SINGULAIR [Concomitant]
     Indication: ALLERGY
  8. NATURES TEARS [Concomitant]
     Indication: DRUG USE FOR UNKNOWN INDICATION
     Dosage: UNK UNK, prn
  9. SOOTHE NIGHTIME OINTMENT [Concomitant]
     Indication: DRUG USE FOR UNKNOWN INDICATION
     Dosage: UNK, qhs
     Route: 047

REACTIONS (8)
  - Anxiety [Unknown]
  - Eyelid irritation [Recovering/Resolving]
  - Paraesthesia [Recovering/Resolving]
  - Abnormal sensation in eye [Recovering/Resolving]
  - Pain [Recovering/Resolving]
  - Eye irritation [Recovering/Resolving]
  - Foreign body sensation in eyes [Recovering/Resolving]
  - Vision blurred [Recovering/Resolving]
